FAERS Safety Report 10247603 (Version 1)
Quarter: 2014Q2

REPORT INFORMATION
  Report Type: Report from Study
  Country: IT (occurrence: None)
  Receive Date: 20140617
  Receipt Date: 20140617
  Transmission Date: 20141212
  Serious: Yes (Hospitalization, Other)
  Sender: FDA-Public Use
  Company Number: ADR-2014-01029

PATIENT
  Age: 11 Year
  Sex: Male

DRUGS (14)
  1. BACLOFEN INTRATHECAL [Suspect]
     Indication: ASTROCYTOMA
     Dates: start: 200709, end: 20140512
  2. TIVC VS TIV INJECTION, INTRAMUSCULAR [Suspect]
     Indication: IMMUNISATION
     Dosage: 12/03/2013  11:20:00
     Dates: start: 20131203
  3. ZICONOTIDE [Suspect]
     Dates: start: 201209, end: 20140512
  4. MENVEO [Concomitant]
  5. PREVENAR [Concomitant]
  6. TETRAVAC [Concomitant]
  7. TRAZODONE (TRAZODONE) [Concomitant]
  8. OXCARBAZEPINE (OXCARBAZEPINE) [Concomitant]
  9. CLONAZEPAM (CLONAZEPAM) [Concomitant]
  10. TETRAVAC (DIPHTHERIA VACCINE, PERTUSSIS VACCINE, POLIO VACCINE, TETANUS VACCINE) [Concomitant]
  11. DIAZEPAM (DIAZEPAM) [Concomitant]
  12. PAROXETINE (PAROXETINE) [Concomitant]
  13. LEOVTIROXINA (LEVOTHYROXINE SODIUM) [Concomitant]
  14. TRIPTORELIN (TRIPTORELIN) [Concomitant]

REACTIONS (4)
  - Hypertension [None]
  - Headache [None]
  - Vomiting [None]
  - Toxicity to various agents [None]
